FAERS Safety Report 24451490 (Version 1)
Quarter: 2024Q4

REPORT INFORMATION
  Report Type: Spontaneous
  Country: US (occurrence: US)
  Receive Date: 20241017
  Receipt Date: 20241017
  Transmission Date: 20250114
  Serious: No
  Sender: PFIZER
  Company Number: US-PFIZER INC-202400277372

PATIENT
  Sex: Female

DRUGS (1)
  1. CYTOTEC [Suspect]
     Active Substance: MISOPROSTOL
     Dosage: DAILY
     Dates: start: 2009, end: 20241010

REACTIONS (3)
  - Malaise [Unknown]
  - Nausea [Unknown]
  - Abdominal pain [Unknown]
